FAERS Safety Report 8585718-1 (Version None)
Quarter: 2012Q3

REPORT INFORMATION
  Report Type: 
  Country: None (occurrence: None)
  Receive Date: 20120810
  Receipt Date: 20120809
  Transmission Date: 20120928
  Serious: Yes (Other)
  Sender: FDA-Public Use
  Company Number: JP-PFIZER INC-2012193740

PATIENT
  Age: 78 Year
  Sex: Female

DRUGS (1)
  1. EPLERENONE [Suspect]
     Dosage: UNK
     Dates: start: 20120601

REACTIONS (2)
  - HOT FLUSH [None]
  - BLOOD PRESSURE INCREASED [None]
